FAERS Safety Report 20882522 (Version 1)
Quarter: 2022Q2

REPORT INFORMATION
  Report Type: Spontaneous
  Country: US (occurrence: US)
  Receive Date: 20220527
  Receipt Date: 20220527
  Transmission Date: 20220720
  Serious: Yes (Hospitalization, Other)
  Sender: FDA-Public Use
  Company Number: US-BoehringerIngelheim-2022-BI-172195

PATIENT
  Age: 34 Year
  Sex: Female

DRUGS (3)
  1. EMPAGLIFLOZIN [Suspect]
     Active Substance: EMPAGLIFLOZIN
     Indication: Type 2 diabetes mellitus
  2. METFORMIN [Concomitant]
     Active Substance: METFORMIN HYDROCHLORIDE
     Indication: Type 2 diabetes mellitus
  3. METFORMIN [Concomitant]
     Active Substance: METFORMIN HYDROCHLORIDE

REACTIONS (6)
  - Foreign body ingestion [Recovered/Resolved]
  - Sensation of foreign body [Unknown]
  - Hypophagia [Recovered/Resolved]
  - Oropharyngeal pain [Unknown]
  - Euglycaemic diabetic ketoacidosis [Unknown]
  - Off label use [Unknown]
